FAERS Safety Report 7996426-X (Version None)
Quarter: 2011Q4

REPORT INFORMATION
  Report Type: 
  Country: None (occurrence: None)
  Receive Date: 20111220
  Receipt Date: 20111205
  Transmission Date: 20120403
  Serious: Yes (Hospitalization)
  Sender: FDA-Public Use
  Company Number: US-WATSON-2011-21846

PATIENT
  Age: 32 Year
  Sex: Female

DRUGS (3)
  1. HYDROXYCHLOROQUINE SULFATE [Suspect]
     Indication: SUICIDE ATTEMPT
     Dosage: 18 G SINGLE
     Route: 048
  2. DIAZEPAM [Suspect]
     Dosage: 2MG/KG BOLUS
     Route: 042
  3. DIAZEPAM [Suspect]
     Indication: OVERDOSE
     Dosage: 5 MG/HR INFUSION
     Route: 042

REACTIONS (10)
  - DRUG INTERACTION [None]
  - ELECTROLYTE IMBALANCE [None]
  - HYPOTENSION [None]
  - ELECTROCARDIOGRAM ABNORMAL [None]
  - QRS AXIS ABNORMAL [None]
  - DRUG RESISTANCE [None]
  - HYPOPHOSPHATAEMIA [None]
  - ELECTROCARDIOGRAM QT PROLONGED [None]
  - OVERDOSE [None]
  - HYPOKALAEMIA [None]
